FAERS Safety Report 14900996 (Version 2)
Quarter: 2020Q4

REPORT INFORMATION
  Report Type: Report from Study
  Country: CA (occurrence: CA)
  Receive Date: 20180516
  Receipt Date: 20201123
  Transmission Date: 20210113
  Serious: Yes (Other)
  Sender: FDA-Public Use
  Company Number: CA-GLAXOSMITHKLINE-CA2018GSK086662

PATIENT
  Age: 44 Year
  Sex: Female

DRUGS (2)
  1. MEPOLIZUMAB [Suspect]
     Active Substance: MEPOLIZUMAB
     Indication: ASTHMA
     Dosage: 100 MG, Z (MONTHLY)
     Dates: start: 20170926
  2. MEPOLIZUMAB [Suspect]
     Active Substance: MEPOLIZUMAB
     Dosage: 100 MG, Z (MONTHLY)

REACTIONS (6)
  - Disease recurrence [Unknown]
  - Therapeutic product effect incomplete [Unknown]
  - Uterine leiomyoma embolisation [Unknown]
  - Sinus disorder [Unknown]
  - Pain [Unknown]
  - Nasal polyps [Unknown]

NARRATIVE: CASE EVENT DATE: 20180504
